FAERS Safety Report 8215834-5 (Version None)
Quarter: 2012Q1

REPORT INFORMATION
  Report Type: 
  Country: None (occurrence: None)
  Receive Date: 20120316
  Receipt Date: 20120306
  Transmission Date: 20120608
  Serious: Yes (Hospitalization)
  Sender: FDA-Public Use
  Company Number: DE-JNJFOC-20120307551

PATIENT
  Sex: Female
  Weight: 110 kg

DRUGS (15)
  1. TAPENTADOL HYDROCHLORIDE [Suspect]
     Dosage: THRICE A DAY
     Route: 048
     Dates: start: 20110101, end: 20110101
  2. NALOXONE HYDROCHLORIDE W/TILIDINE HYDROCHLO. [Concomitant]
     Indication: ARTHRALGIA
     Dosage: 201-300MG PER DAY
     Route: 065
  3. TAPENTADOL HYDROCHLORIDE [Suspect]
     Dosage: TWICE A DAY
     Route: 048
     Dates: start: 20101007
  4. TAPENTADOL HYDROCHLORIDE [Suspect]
     Dosage: PER DAY
     Route: 048
     Dates: start: 20110101, end: 20110711
  5. TAPENTADOL HYDROCHLORIDE [Suspect]
     Dosage: THRICE A DAY
     Route: 048
     Dates: start: 20110101, end: 20110101
  6. TAPENTADOL HYDROCHLORIDE [Suspect]
     Dosage: TWICE A DAY
     Route: 048
  7. NALOXONE HYDROCHLORIDE W/TILIDINE HYDROCHLO. [Concomitant]
     Indication: BACK PAIN
     Route: 065
  8. NALOXONE HYDROCHLORIDE W/TILIDINE HYDROCHLO. [Concomitant]
     Dosage: 201-300MG PER DAY
     Route: 065
  9. TAPENTADOL HYDROCHLORIDE [Suspect]
     Dosage: TWICE A DAY
     Route: 048
  10. TAPENTADOL HYDROCHLORIDE [Suspect]
     Indication: BACK PAIN
     Dosage: TWICE A DAY
     Route: 048
     Dates: start: 20101007
  11. LAXATIVES [Concomitant]
     Indication: PRODUCT USED FOR UNKNOWN INDICATION
     Route: 065
  12. TAPENTADOL HYDROCHLORIDE [Suspect]
     Dosage: PER DAY
     Route: 048
     Dates: start: 20110101, end: 20110711
  13. TAPENTADOL HYDROCHLORIDE [Suspect]
     Indication: ARTHRALGIA
     Dosage: THRICE A DAY
     Route: 048
  14. NALOXONE HYDROCHLORIDE W/TILIDINE HYDROCHLO. [Concomitant]
     Route: 065
  15. TAPENTADOL HYDROCHLORIDE [Suspect]
     Dosage: THRICE A DAY
     Route: 048

REACTIONS (2)
  - HYPERTENSION [None]
  - RENAL FAILURE [None]
